FAERS Safety Report 20003132 (Version 1)
Quarter: 2021Q4

REPORT INFORMATION
  Report Type: Spontaneous
  Country: US (occurrence: US)
  Receive Date: 20211027
  Receipt Date: 20211027
  Transmission Date: 20220303
  Serious: No
  Sender: FDA-Public Use
  Company Number: US-BAYER-2021A231988

PATIENT
  Age: 46 Year
  Sex: Male

DRUGS (2)
  1. SORAFENIB [Suspect]
     Active Substance: SORAFENIB
     Indication: Parathyroid tumour malignant
     Dosage: UNK
  2. EVEROLIMUS [Suspect]
     Active Substance: EVEROLIMUS
     Indication: Parathyroid tumour malignant
     Dosage: UNK

REACTIONS (1)
  - Off label use [None]
